FAERS Safety Report 6284436-2 (Version None)
Quarter: 2009Q3

REPORT INFORMATION
  Report Type: 
  Country: None (occurrence: None)
  Receive Date: 20090727
  Receipt Date: 20090714
  Transmission Date: 20100115
  Serious: Yes (Other)
  Sender: FDA-Public Use
  Company Number: JP-ROCHE-644954

PATIENT
  Age: 20 Year
  Sex: Female

DRUGS (4)
  1. DIAZEPAM [Suspect]
     Indication: DRUG USE FOR UNKNOWN INDICATION
     Route: 048
  2. DEPAKENE [Concomitant]
     Route: 048
  3. TEGRETOL [Concomitant]
     Route: 048
  4. PHENOBARBITAL [Concomitant]
     Route: 048

REACTIONS (1)
  - ILEUS [None]
